FAERS Safety Report 14742918 (Version 1)
Quarter: 2018Q2

REPORT INFORMATION
  Report Type: Spontaneous
  Country: GB (occurrence: FR)
  Receive Date: 20180410
  Receipt Date: 20180410
  Transmission Date: 20180711
  Serious: Yes (Hospitalization)
  Sender: FDA-Public Use
  Company Number: FR-FRESENIUS KABI-FK201804254

PATIENT
  Age: 68 Year
  Sex: Female

DRUGS (3)
  1. AMIKACINE [Suspect]
     Active Substance: AMIKACIN
     Indication: SEPSIS
     Route: 042
     Dates: start: 20180227, end: 20180301
  2. VANCOMYCIN (MANUFACTURER UNKNOWN) [Suspect]
     Active Substance: VANCOMYCIN
     Indication: SEPSIS
     Route: 042
     Dates: start: 20180227, end: 20180301
  3. TAZOCILLINE 4 G/500 MG, POWDER FOR SOLUTION FOR INFUSION [Suspect]
     Active Substance: PIPERACILLIN SODIUM\TAZOBACTAM SODIUM
     Indication: SEPSIS
     Route: 042
     Dates: start: 20180227, end: 20180308

REACTIONS (1)
  - Encephalopathy [Recovered/Resolved]

NARRATIVE: CASE EVENT DATE: 20180301
